FAERS Safety Report 16934319 (Version 4)
Quarter: 2019Q4

REPORT INFORMATION
  Report Type: Report from Study
  Country: None (occurrence: US)
  Receive Date: 20191018
  Receipt Date: 20191223
  Transmission Date: 20200122
  Serious: Yes (Hospitalization, Other)
  Sender: FDA-Public Use
  Company Number: US-ABBVIE-19K-163-2912528-00

PATIENT
  Age: 24 Year
  Sex: Male
  Weight: 80.81 kg

DRUGS (3)
  1. HUMIRA [Suspect]
     Active Substance: ADALIMUMAB
     Indication: CROHN^S DISEASE
     Dosage: CITRATE FREE
     Route: 058
     Dates: start: 2016, end: 201705
  2. PREDNISONE. [Concomitant]
     Active Substance: PREDNISONE
     Indication: PRODUCT USED FOR UNKNOWN INDICATION
  3. HUMIRA [Suspect]
     Active Substance: ADALIMUMAB
     Indication: COLITIS ULCERATIVE
     Route: 058
     Dates: start: 20190721

REACTIONS (23)
  - Tooth extraction [Unknown]
  - Fistula [Unknown]
  - Decreased appetite [Recovering/Resolving]
  - Night sweats [Not Recovered/Not Resolved]
  - Rectal haemorrhage [Recovering/Resolving]
  - Vomiting [Not Recovered/Not Resolved]
  - Constipation [Recovering/Resolving]
  - Crohn^s disease [Recovering/Resolving]
  - Therapeutic response shortened [Unknown]
  - Intestinal resection [Unknown]
  - Depressed mood [Not Recovered/Not Resolved]
  - Diarrhoea haemorrhagic [Unknown]
  - Abdominal pain [Recovering/Resolving]
  - Haemorrhage [Unknown]
  - Haemorrhoids [Unknown]
  - Tooth impacted [Unknown]
  - Vitreous floaters [Not Recovered/Not Resolved]
  - Loss of personal independence in daily activities [Not Recovered/Not Resolved]
  - Insomnia [Not Recovered/Not Resolved]
  - Anxiety [Not Recovered/Not Resolved]
  - Diarrhoea [Not Recovered/Not Resolved]
  - Nausea [Recovering/Resolving]
  - Tooth abscess [Unknown]

NARRATIVE: CASE EVENT DATE: 20170516
